FAERS Safety Report 10765659 (Version 1)
Quarter: 2015Q1

REPORT INFORMATION
  Report Type: Spontaneous
  Country: CA (occurrence: CA)
  Receive Date: 20150205
  Receipt Date: 20150205
  Transmission Date: 20150721
  Serious: Yes (Other)
  Sender: FDA-Public Use
  Company Number: CA-ROCHE-1531111

PATIENT
  Age: 61 Year
  Sex: Female

DRUGS (11)
  1. EPIRUBICIN [Concomitant]
     Active Substance: EPIRUBICIN
     Dosage: RECEIVED 3 CYCLES, NOVEMBER 28, DECEMBER 18, JANUARY 23, FEBRUARY 13
     Route: 065
  2. ZOFRAN [Concomitant]
     Active Substance: ONDANSETRON HYDROCHLORIDE
  3. FLUOROURACIL. [Concomitant]
     Active Substance: FLUOROURACIL
     Dosage: RECEIVED 3 CYCLES, NOVEMBER 28, DECEMBER 18, JANUARY 23, FEBRUARY 13
     Route: 065
  4. NAPROXEN. [Suspect]
     Active Substance: NAPROXEN
     Indication: ARTHRITIS
     Route: 065
  5. NEULASTA [Concomitant]
     Active Substance: PEGFILGRASTIM
     Route: 065
  6. EMEND [Concomitant]
     Active Substance: APREPITANT
  7. STEMETIL [Concomitant]
     Active Substance: PROCHLORPERAZINE MALEATE
     Route: 065
  8. LUTEIN [Concomitant]
     Active Substance: LUTEIN
  9. DECADRON [Concomitant]
     Active Substance: DEXAMETHASONE
     Route: 065
  10. TYLENOL [Concomitant]
     Active Substance: ACETAMINOPHEN
     Route: 065
  11. CYCLOPHOSPHAMIDE. [Concomitant]
     Active Substance: CYCLOPHOSPHAMIDE
     Dosage: RECEIVED 3 CYCLES, NOVEMBER 28, DECEMBER 18, JANUARY 23, FEBRUARY 13
     Route: 065

REACTIONS (2)
  - Breast cancer metastatic [Unknown]
  - Internal haemorrhage [Recovered/Resolved]

NARRATIVE: CASE EVENT DATE: 201407
